FAERS Safety Report 7010404-9 (Version None)
Quarter: 2010Q3

REPORT INFORMATION
  Report Type: 
  Country: None (occurrence: None)
  Receive Date: 20100923
  Receipt Date: 20100614
  Transmission Date: 20110219
  Serious: No
  Sender: FDA-Public Use
  Company Number: US-BAUSCH-2010BL003223

PATIENT
  Sex: Male

DRUGS (1)
  1. BESIVANCE [Suspect]
     Indication: PRODUCT USED FOR UNKNOWN INDICATION
     Route: 047

REACTIONS (2)
  - EYE INFLAMMATION [None]
  - OCULAR HYPERAEMIA [None]
